FAERS Safety Report 17126127 (Version 1)
Quarter: 2019Q4

REPORT INFORMATION
  Report Type: Spontaneous
  Country: US (occurrence: US)
  Receive Date: 20191209
  Receipt Date: 20191209
  Transmission Date: 20200122
  Serious: Yes (Other)
  Sender: FDA-Public Use
  Company Number: US-AUROBINDO-AUR-APL-2019-076204

PATIENT
  Age: 51 Year
  Sex: Female

DRUGS (4)
  1. SUBOXONE [Suspect]
     Active Substance: BUPRENORPHINE HYDROCHLORIDE\NALOXONE HYDROCHLORIDE
     Indication: PAIN MANAGEMENT
     Dosage: 8/2 MG, THREE TIMES A DAY
     Route: 065
  2. DEXTROMETHORPHAN [Suspect]
     Active Substance: DEXTROMETHORPHAN
     Indication: COUGH
     Dosage: UNK, TAKEN AT AFTERNOON
     Route: 065
  3. DIPHENHYDRAMINE. [Suspect]
     Active Substance: DIPHENHYDRAMINE
     Indication: COUGH
     Dosage: UNK, AT NOON
     Route: 065
  4. METHYLPHENIDATE HYDROCHLORIDE. [Suspect]
     Active Substance: METHYLPHENIDATE HYDROCHLORIDE
     Indication: ATTENTION DEFICIT/HYPERACTIVITY DISORDER
     Dosage: 30 MILLIGRAM, TWO TIMES A DAY
     Route: 065

REACTIONS (10)
  - Impaired driving ability [Unknown]
  - Toxicity to various agents [Unknown]
  - Moaning [Unknown]
  - Abnormal behaviour [Unknown]
  - Dyskinesia [Unknown]
  - Hallucination [Unknown]
  - Protrusion tongue [Unknown]
  - Ill-defined disorder [Unknown]
  - Gait disturbance [Unknown]
  - Logorrhoea [Unknown]
